FAERS Safety Report 11953272 (Version 1)
Quarter: 2016Q1

REPORT INFORMATION
  Report Type: Report from Study
  Country: US (occurrence: US)
  Receive Date: 20160125
  Receipt Date: 20160125
  Transmission Date: 20160526
  Serious: No
  Sender: FDA-Public Use
  Company Number: US-ABBVIE-15P-163-1513870-00

PATIENT
  Age: 59 Year
  Sex: Male

DRUGS (10)
  1. TECHNIVIE [Suspect]
     Active Substance: OMBITASVIR HEMINONAHYDRATE\PARITAPREVIR DIHYDRATE\RITONAVIR
     Indication: CHRONIC HEPATITIS C
     Route: 048
     Dates: start: 201511, end: 20151203
  2. MODERIBA [Suspect]
     Active Substance: RIBAVIRIN
     Indication: CHRONIC HEPATITIS C
     Route: 048
     Dates: start: 201511, end: 20151203
  3. GABAPENTIN. [Concomitant]
     Active Substance: GABAPENTIN
     Indication: PRODUCT USED FOR UNKNOWN INDICATION
  4. HYDROCHLOROTHIAZIDE. [Concomitant]
     Active Substance: HYDROCHLOROTHIAZIDE
     Indication: HYPERTENSION
  5. NEURONTIN [Concomitant]
     Active Substance: GABAPENTIN
     Indication: PRODUCT USED FOR UNKNOWN INDICATION
  6. LISINOPRIL. [Concomitant]
     Active Substance: LISINOPRIL
     Indication: PRODUCT USED FOR UNKNOWN INDICATION
  7. FLEXERIL [Concomitant]
     Active Substance: CYCLOBENZAPRINE HYDROCHLORIDE
     Indication: PRODUCT USED FOR UNKNOWN INDICATION
  8. OXYCODONE [Concomitant]
     Active Substance: OXYCODONE
     Indication: NERVE INJURY
  9. TECHNIVIE [Suspect]
     Active Substance: OMBITASVIR HEMINONAHYDRATE\PARITAPREVIR DIHYDRATE\RITONAVIR
     Route: 048
     Dates: start: 20151203
  10. MODERIBA [Suspect]
     Active Substance: RIBAVIRIN
     Route: 048
     Dates: start: 20151203

REACTIONS (1)
  - Incorrect dose administered [Not Recovered/Not Resolved]

NARRATIVE: CASE EVENT DATE: 201511
